FAERS Safety Report 7233625-9 (Version None)
Quarter: 2011Q1

REPORT INFORMATION
  Report Type: 
  Country: None (occurrence: None)
  Receive Date: 20110119
  Receipt Date: 20110114
  Transmission Date: 20110831
  Serious: Yes (Other)
  Sender: FDA-Public Use
  Company Number: FR-MERCK-1012FRA00065

PATIENT
  Age: 63 Year
  Sex: Male
  Weight: 79 kg

DRUGS (7)
  1. REPAGLINIDE [Concomitant]
     Indication: INSULIN-REQUIRING TYPE 2 DIABETES MELLITUS
     Route: 065
  2. INSULIN GLARGINE [Concomitant]
     Indication: INSULIN-REQUIRING TYPE 2 DIABETES MELLITUS
     Route: 065
  3. FELODIPINE AND METOPROLOL SUCCINATE [Concomitant]
     Indication: HYPERTENSION
     Route: 065
  4. JANUVIA [Suspect]
     Indication: INSULIN-REQUIRING TYPE 2 DIABETES MELLITUS
     Route: 048
     Dates: start: 20100601, end: 20101206
  5. LISINOPRIL [Concomitant]
     Indication: HYPERTENSION
     Route: 065
  6. SPIRONOLACTONE [Concomitant]
     Indication: HYPERTENSION
     Route: 065
  7. INSULIN ASPART [Concomitant]
     Indication: INSULIN-REQUIRING TYPE 2 DIABETES MELLITUS
     Route: 065

REACTIONS (2)
  - FEMORAL ARTERY OCCLUSION [None]
  - EXTREMITY NECROSIS [None]
